FAERS Safety Report 21997564 (Version 3)
Quarter: 2023Q2

REPORT INFORMATION
  Report Type: Spontaneous
  Country: FI (occurrence: FI)
  Receive Date: 20230216
  Receipt Date: 20230502
  Transmission Date: 20230722
  Serious: Yes (Other)
  Sender: FDA-Public Use
  Company Number: FI-JNJFOC-20230229306

PATIENT
  Age: 60 Year
  Sex: Female

DRUGS (21)
  1. TREMFYA [Suspect]
     Active Substance: GUSELKUMAB
     Indication: Psoriasis
     Route: 058
     Dates: start: 202109
  2. TOUJEO [Concomitant]
     Active Substance: INSULIN GLARGINE
     Dosage: 70UNITS
     Route: 058
  3. ACETAMINOPHEN [Concomitant]
     Active Substance: ACETAMINOPHEN
     Route: 048
  4. CYMBALTA [Concomitant]
     Active Substance: DULOXETINE HYDROCHLORIDE
  5. EMPAGLIFLOZIN [Concomitant]
     Active Substance: EMPAGLIFLOZIN
     Route: 048
  6. ESTRADIOL [Concomitant]
     Active Substance: ESTRADIOL
     Dosage: 10 MICROGRAM
     Route: 067
  7. CHOLECALCIFEROL [Concomitant]
     Active Substance: CHOLECALCIFEROL
     Dosage: 20 MICROGRAM
  8. METOPROLOL [Concomitant]
     Active Substance: METOPROLOL
     Dosage: 1.5 TABLET X 1 P.O
  9. PANTOPRAZOLE [Concomitant]
     Active Substance: PANTOPRAZOLE
  10. TACROLIMUS [Concomitant]
     Active Substance: TACROLIMUS
  11. TRAMADOL [Concomitant]
     Active Substance: TRAMADOL
  12. ZOLPIDEM [Concomitant]
     Active Substance: ZOLPIDEM TARTRATE
     Dosage: 0.5- 1 TABLETS
  13. AMLODIPINE [Concomitant]
     Active Substance: AMLODIPINE BESYLATE
  14. AQUALAN L [Concomitant]
  15. BETAMETHASONE [Concomitant]
     Active Substance: BETAMETHASONE
     Dosage: 1 MG/ML
  16. DESONIDE [Concomitant]
     Active Substance: DESONIDE
     Dosage: 1-2 TIMES A DAY IF NEEDED
  17. BETAMETHASONE VALERATE\FUSIDIC ACID [Concomitant]
     Active Substance: BETAMETHASONE VALERATE\FUSIDIC ACID
  18. IBUPROFEN [Concomitant]
     Active Substance: IBUPROFEN
     Dosage: 1-2 TIMES A DAY IF NEEDED
     Route: 048
  19. CANDESARTAN CILEXETIL\HYDROCHLOROTHIAZIDE [Concomitant]
     Active Substance: CANDESARTAN CILEXETIL\HYDROCHLOROTHIAZIDE
     Route: 048
  20. INSULIN LISPRO [Concomitant]
     Active Substance: INSULIN LISPRO
     Dosage: 100 U/ML
  21. OZEMPIC [Concomitant]
     Active Substance: SEMAGLUTIDE
     Dosage: FIRST MONTH 0.25 MG, THEN 1 MONTH 0.5 MG AND ONWARDS AS A MAINTENANCE DOSE 1 MG
     Route: 058

REACTIONS (1)
  - Erysipelas [Recovered/Resolved]

NARRATIVE: CASE EVENT DATE: 20220520
